FAERS Safety Report 25950004 (Version 1)
Quarter: 2025Q4

REPORT INFORMATION
  Report Type: Spontaneous
  Country: US (occurrence: US)
  Receive Date: 20251022
  Receipt Date: 20251022
  Transmission Date: 20260118
  Serious: No
  Sender: GALDERMA
  Company Number: US-GALDERMA-US2024017923

PATIENT

DRUGS (1)
  1. AKLIEF [Suspect]
     Active Substance: TRIFAROTENE
     Indication: Product used for unknown indication
     Dosage: 1 DOSAGE FORM, APPLIED ON FACE
     Route: 061
     Dates: start: 20241205

REACTIONS (2)
  - Skin discolouration [Unknown]
  - Application site erythema [Unknown]

NARRATIVE: CASE EVENT DATE: 20241201
